FAERS Safety Report 11513613 (Version 1)
Quarter: 2015Q3

REPORT INFORMATION
  Report Type: Spontaneous
  Country: US (occurrence: US)
  Receive Date: 20150903
  Receipt Date: 20150903
  Transmission Date: 20151125
  Serious: No
  Sender: FDA-Public Use
  Company Number: US-ELI_LILLY_AND_COMPANY-US201211003248

PATIENT
  Sex: Female
  Weight: 58 kg

DRUGS (16)
  1. ROSUVASTATIN CALCIUM. [Concomitant]
     Active Substance: ROSUVASTATIN CALCIUM
     Indication: BLOOD CHOLESTEROL
     Dosage: 10 MG, QD
     Dates: start: 2008
  2. JANUMET [Concomitant]
     Active Substance: METFORMIN HYDROCHLORIDE\SITAGLIPTIN PHOSPHATE
     Indication: DIABETES MELLITUS
     Dosage: 1000 MG, QD
     Dates: start: 2009
  3. INFLIXIMAB [Concomitant]
     Active Substance: INFLIXIMAB
     Indication: PSORIATIC ARTHROPATHY
     Dosage: UNK
     Dates: start: 2010
  4. NICOTINIC ACID [Concomitant]
     Active Substance: NIACIN
     Indication: DYSPEPSIA
     Dosage: 500 MG, QD
     Route: 048
     Dates: start: 2006
  5. OMEPRAZOLE. [Concomitant]
     Active Substance: OMEPRAZOLE
     Indication: DYSPEPSIA
     Dosage: UNK
  6. VITAMIN B12 [Concomitant]
     Active Substance: CYANOCOBALAMIN
     Indication: VITAMIN B12 DEFICIENCY
     Dosage: UNK, MONTHLY (1/M)
     Dates: start: 2008
  7. FISH OIL [Concomitant]
     Active Substance: FISH OIL
     Indication: DYSPEPSIA
     Dosage: 1000 MG, BID
     Route: 048
  8. LISINOPRIL. [Concomitant]
     Active Substance: LISINOPRIL
     Indication: BLOOD PRESSURE MEASUREMENT
     Dosage: 40 MG, QD
     Route: 048
     Dates: start: 2009
  9. FOLIC ACID. [Concomitant]
     Active Substance: FOLIC ACID
     Indication: DYSPEPSIA
     Dosage: UNK
  10. OXYCODONE HYDROCHLORIDE. [Concomitant]
     Active Substance: OXYCODONE HYDROCHLORIDE
     Dosage: UNK
     Dates: start: 201206
  11. HYDROCODONE [Concomitant]
     Active Substance: HYDROCODONE
     Dosage: UNK
     Dates: end: 201206
  12. CYMBALTA [Suspect]
     Active Substance: DULOXETINE HYDROCHLORIDE
     Dosage: UNK
     Dates: end: 201206
  13. RECOMBINATE [Concomitant]
     Active Substance: ANTIHEMOPHILIC FACTOR, HUMAN RECOMBINANT
     Indication: PSORIATIC ARTHROPATHY
     Dosage: UNK
     Dates: start: 2010
  14. PAROXETINE HYDROCHLORIDE. [Concomitant]
     Active Substance: PAROXETINE HYDROCHLORIDE
     Indication: RELAXATION THERAPY
     Dosage: 10 MG, QD
     Dates: start: 2006
  15. PREGABALIN. [Concomitant]
     Active Substance: PREGABALIN
     Dosage: UNK
     Dates: start: 201206
  16. METHOTREXATE [Concomitant]
     Active Substance: METHOTREXATE
     Indication: ARTHRITIS
     Dosage: 2.5 MG, 3/W
     Route: 048

REACTIONS (8)
  - Malaise [Unknown]
  - Peripheral swelling [Unknown]
  - Headache [Unknown]
  - Rheumatoid arthritis [Not Recovered/Not Resolved]
  - Feeling abnormal [Recovered/Resolved]
  - Migraine [Unknown]
  - Joint dislocation [Not Recovered/Not Resolved]
  - Fall [Recovered/Resolved]

NARRATIVE: CASE EVENT DATE: 2011
